FAERS Safety Report 10364546 (Version 1)
Quarter: 2014Q3

REPORT INFORMATION
  Report Type: Spontaneous
  Country: US (occurrence: None)
  Receive Date: 20140801
  Receipt Date: 20140801
  Transmission Date: 20150326
  Serious: Yes (Other)
  Sender: FDA-Public Use
  Company Number: 201407102

PATIENT
  Age: 60 Year
  Sex: Male

DRUGS (2)
  1. TESTIM [Suspect]
     Active Substance: TESTOSTERONE
     Indication: BLOOD TESTOSTERONE DECREASED
     Dates: start: 2008, end: 2013
  2. ANDROGEL [Suspect]
     Active Substance: TESTOSTERONE
     Indication: BLOOD TESTOSTERONE DECREASED
     Route: 062
     Dates: start: 2013, end: 2014

REACTIONS (4)
  - Economic problem [None]
  - Myocardial infarction [None]
  - Unevaluable event [None]
  - Injury [None]

NARRATIVE: CASE EVENT DATE: 20140103
